FAERS Safety Report 5288637-1 (Version None)
Quarter: 2007Q2

REPORT INFORMATION
  Report Type: 
  Country: None (occurrence: None)
  Receive Date: 20070405
  Receipt Date: 20070329
  Transmission Date: 20071010
  Serious: Yes (Other)
  Sender: FDA-Public Use
  Company Number: 2007UW06439

PATIENT
  Age: 47 Year
  Sex: Female

DRUGS (15)
  1. SEROQUEL [Suspect]
     Indication: ANXIETY
     Route: 048
     Dates: start: 20070101
  2. SEROQUEL [Suspect]
     Indication: DEPRESSION
     Route: 048
     Dates: start: 20070101
  3. SEROQUEL [Suspect]
     Indication: SCHIZOPHRENIA
     Route: 048
     Dates: start: 20070101
  4. SEROQUEL [Suspect]
     Route: 048
  5. SEROQUEL [Suspect]
     Route: 048
  6. SEROQUEL [Suspect]
     Route: 048
  7. SEROQUEL [Suspect]
     Route: 048
  8. SEROQUEL [Suspect]
     Route: 048
  9. SEROQUEL [Suspect]
     Route: 048
  10. CLOZARIL [Concomitant]
     Dates: start: 20030101, end: 20070101
  11. CLOZARIL [Concomitant]
     Dates: start: 20070101
  12. TAXOL [Concomitant]
     Indication: UTERINE CANCER
  13. CARBOPLATIN [Concomitant]
     Indication: UTERINE CANCER
  14. ABILIFY [Concomitant]
  15. ENBREL [Concomitant]

REACTIONS (3)
  - ANGER [None]
  - BLINDNESS [None]
  - NEUROLOGICAL SYMPTOM [None]
